FAERS Safety Report 22306387 (Version 2)
Quarter: 2023Q2

REPORT INFORMATION
  Report Type: Spontaneous
  Country: US (occurrence: US)
  Receive Date: 20230511
  Receipt Date: 20230527
  Transmission Date: 20230722
  Serious: No
  Sender: FDA-Public Use
  Company Number: US-JNJFOC-20230524923

PATIENT
  Age: 40 Year
  Sex: Male
  Weight: 108.96 kg

DRUGS (8)
  1. TREMFYA [Suspect]
     Active Substance: GUSELKUMAB
     Indication: Psoriasis
     Route: 058
  2. TREMFYA [Suspect]
     Active Substance: GUSELKUMAB
  3. TREMFYA [Suspect]
     Active Substance: GUSELKUMAB
  4. VTAMA [Concomitant]
     Active Substance: TAPINAROF
     Indication: Psoriasis
  5. ABILIFY [Concomitant]
     Active Substance: ARIPIPRAZOLE
     Indication: Bipolar disorder
  6. ARMOUR THYROID [Concomitant]
     Active Substance: THYROID, PORCINE
     Indication: Hypothyroidism
  7. LAMICTAL [Concomitant]
     Active Substance: LAMOTRIGINE
     Indication: Bipolar disorder
  8. ASPIRIN [Concomitant]
     Active Substance: ASPIRIN

REACTIONS (1)
  - Arthralgia [Unknown]
